FAERS Safety Report 18700365 (Version 1)
Quarter: 2021Q1

REPORT INFORMATION
  Report Type: Spontaneous
  Country: FR (occurrence: FR)
  Receive Date: 20210105
  Receipt Date: 20210105
  Transmission Date: 20210419
  Serious: Yes (Hospitalization)
  Sender: FDA-Public Use
  Company Number: FR-ROCHE-2743885

PATIENT
  Age: 70 Year
  Sex: Male
  Weight: 80 kg

DRUGS (13)
  1. CLOXACILLINE [Suspect]
     Active Substance: CLOXACILLIN
     Indication: INFECTION
     Route: 042
     Dates: start: 20200115, end: 20200225
  2. TACROLIMUS MONOHYDRATE [Suspect]
     Active Substance: TACROLIMUS
     Indication: PROPHYLAXIS AGAINST TRANSPLANT REJECTION
     Route: 048
     Dates: start: 201912
  3. BACTRIM [Suspect]
     Active Substance: SULFAMETHOXAZOLE\TRIMETHOPRIM
     Indication: INFECTION
     Route: 048
     Dates: end: 20200214
  4. CEFTAZIDIME. [Suspect]
     Active Substance: CEFTAZIDIME
     Indication: INFECTION
     Route: 042
     Dates: start: 20200215, end: 20200226
  5. CELLCEPT [Suspect]
     Active Substance: MYCOPHENOLATE MOFETIL\MYCOPHENOLATE MOFETIL HYDROCHLORIDE
     Indication: PROPHYLAXIS AGAINST TRANSPLANT REJECTION
     Route: 048
     Dates: start: 201912, end: 20200217
  6. BISOPROLOL [Concomitant]
     Active Substance: BISOPROLOL
  7. VALGANCICLOVIR. [Concomitant]
     Active Substance: VALGANCICLOVIR
  8. INSULINE ASPARTE [Concomitant]
     Active Substance: INSULIN ASPART
  9. INSULINE GLARGINE [Concomitant]
     Active Substance: INSULIN GLARGINE
  10. CIPROFLOXACINE [Suspect]
     Active Substance: CIPROFLOXACIN
     Indication: INFECTION
     Route: 042
     Dates: start: 20200214
  11. ASPEGIC [Concomitant]
  12. LANSOPRAZOLE. [Concomitant]
     Active Substance: LANSOPRAZOLE
  13. ATORVASTATINE [Concomitant]
     Active Substance: ATORVASTATIN

REACTIONS (2)
  - Agranulocytosis [Recovered/Resolved]
  - Neutropenia [Recovered/Resolved]

NARRATIVE: CASE EVENT DATE: 20200212
